FAERS Safety Report 10066507 (Version 1)
Quarter: 2014Q2

REPORT INFORMATION
  Report Type: Spontaneous
  Country: US (occurrence: US)
  Receive Date: 20140408
  Receipt Date: 20140408
  Transmission Date: 20141212
  Serious: Yes (Other)
  Sender: FDA-Public Use
  Company Number: US-ALLERGAN-1406406US

PATIENT
  Age: 43 Year
  Sex: Female

DRUGS (11)
  1. BOTOX [Suspect]
     Indication: MIGRAINE
     Dosage: UNK, SINGLE
  2. HUMIRA [Suspect]
     Indication: CROHN^S DISEASE
     Dosage: 40 MG, UNK
     Dates: end: 20140303
  3. SYNTHROID [Concomitant]
     Indication: PRODUCT USED FOR UNKNOWN INDICATION
     Dosage: 119 MG, QD
  4. LEVOTHYROXINE SODIUM [Concomitant]
     Indication: PRODUCT USED FOR UNKNOWN INDICATION
  5. TRAZODONE [Concomitant]
     Indication: SLEEP DISORDER
     Dosage: 75 MG, QPM
  6. POTASSIUM CITRATE [Concomitant]
     Indication: RENAL DISORDER
     Dosage: 2000 MG, UNK
  7. TOPAMAX [Concomitant]
     Indication: MIGRAINE
     Dosage: 50 MG, UNK
  8. FLINSTONES MULTI VITAMIN [Concomitant]
     Indication: PRODUCT USED FOR UNKNOWN INDICATION
  9. FISH OIL [Concomitant]
     Indication: PRODUCT USED FOR UNKNOWN INDICATION
  10. EXTRA VITAMIN D [Concomitant]
     Indication: PRODUCT USED FOR UNKNOWN INDICATION
  11. VITAMIN C [Concomitant]
     Indication: PRODUCT USED FOR UNKNOWN INDICATION

REACTIONS (4)
  - Procedural complication [Unknown]
  - Vaginal operation [Unknown]
  - Vision blurred [Unknown]
  - Visual acuity reduced [Unknown]
